FAERS Safety Report 8131858-0 (Version None)
Quarter: 2012Q1

REPORT INFORMATION
  Report Type: 
  Country: None (occurrence: None)
  Receive Date: 20120213
  Receipt Date: 20120209
  Transmission Date: 20120608
  Serious: Yes (Other)
  Sender: FDA-Public Use
  Company Number: US-PFIZER INC-2012037003

PATIENT
  Sex: Male
  Weight: 90.703 kg

DRUGS (2)
  1. CHANTIX [Suspect]
     Dosage: 0.5 MG, DAILY
     Dates: start: 20091001
  2. CHANTIX [Suspect]
     Indication: SMOKING CESSATION THERAPY
     Dosage: UNK
     Dates: start: 20070101

REACTIONS (5)
  - ABNORMAL DREAMS [None]
  - INFLAMMATION [None]
  - NAUSEA [None]
  - COUGH [None]
  - CHEST PAIN [None]
